FAERS Safety Report 25426854 (Version 2)
Quarter: 2025Q2

REPORT INFORMATION
  Report Type: Spontaneous
  Country: GB (occurrence: GB)
  Receive Date: 20250612
  Receipt Date: 20250624
  Transmission Date: 20250717
  Serious: Yes (Disabling)
  Sender: EMD SERONO INC
  Company Number: GB-Merck Healthcare KGaA-2025028782

PATIENT
  Sex: Male

DRUGS (3)
  1. MAVENCLAD [Suspect]
     Active Substance: CLADRIBINE
     Indication: Multiple sclerosis
  2. MAVENCLAD [Suspect]
     Active Substance: CLADRIBINE
  3. COVID-19 VACCINE [Concomitant]
     Indication: COVID-19 immunisation

REACTIONS (1)
  - Multiple sclerosis relapse [Unknown]
